FAERS Safety Report 8344284-6 (Version None)
Quarter: 2012Q2

REPORT INFORMATION
  Report Type: 
  Country: None (occurrence: None)
  Receive Date: 20120508
  Receipt Date: 20081001
  Transmission Date: 20120825
  Serious: Yes (Other)
  Sender: FDA-Public Use
  Company Number: US-TEVA-US024788

PATIENT
  Sex: Male
  Weight: 86.26 kg

DRUGS (2)
  1. TREANDA [Suspect]
     Dosage: 200 MILLIGRAM;
     Route: 042
     Dates: start: 20080922, end: 20080923
  2. TREANDA [Suspect]
     Indication: CHRONIC LYMPHOCYTIC LEUKAEMIA
     Dosage: 200 MILLIGRAM;
     Route: 042
     Dates: start: 20080804, end: 20080805

REACTIONS (1)
  - NEUTROPHIL COUNT DECREASED [None]
